FAERS Safety Report 5712664-0 (Version None)
Quarter: 2008Q2

REPORT INFORMATION
  Report Type: 
  Country: None (occurrence: None)
  Receive Date: 20080422
  Receipt Date: 20080421
  Transmission Date: 20081010
  Serious: Yes (Other)
  Sender: FDA-Public Use
  Company Number: A0723795A

PATIENT
  Age: 65 Year
  Sex: Female

DRUGS (2)
  1. ALLI [Suspect]
     Indication: WEIGHT LOSS DIET
     Route: 048
     Dates: start: 20070101
  2. PROZAC [Concomitant]

REACTIONS (1)
  - HEPATIC ENZYME INCREASED [None]
